FAERS Safety Report 19518846 (Version 1)
Quarter: 2021Q3

REPORT INFORMATION
  Report Type: Spontaneous
  Country: DK (occurrence: DK)
  Receive Date: 20210712
  Receipt Date: 20210712
  Transmission Date: 20211014
  Serious: Yes (Hospitalization)
  Sender: FDA-Public Use
  Company Number: DK-ASTRAZENECA-2021A599247

PATIENT
  Age: 76 Year
  Sex: Female
  Weight: 81 kg

DRUGS (9)
  1. CARVEDILOL ^HEXAL^ [Concomitant]
     Indication: CARDIAC FAILURE
     Dates: start: 20200814
  2. ANCOZAN [Concomitant]
     Active Substance: LOSARTAN POTASSIUM
     Indication: CARDIAC FAILURE
     Dates: start: 20190625
  3. KALEORID [Concomitant]
     Active Substance: POTASSIUM CHLORIDE
     Indication: MINERAL SUPPLEMENTATION
     Dates: start: 20210226
  4. FORXIGA [Suspect]
     Active Substance: DAPAGLIFLOZIN
     Indication: CARDIAC FAILURE
     Dosage: STRENGTH: 10 MG
     Route: 048
     Dates: start: 20210325, end: 20210505
  5. FURIX [Concomitant]
     Indication: DIURETIC THERAPY
     Dates: start: 20210226
  6. PANTOLOC [Concomitant]
     Active Substance: PANTOPRAZOLE SODIUM
     Indication: GASTROOESOPHAGEAL REFLUX DISEASE
     Dates: start: 20200501
  7. ISOSORBIDMONONITRAT ^ABACUS MEDICINE^ [Concomitant]
     Indication: ARRHYTHMIA PROPHYLAXIS
     Dates: start: 20210226
  8. HJERTEMAGNYL [Concomitant]
     Indication: CARDIAC FAILURE
     Dates: start: 20200501
  9. PANODIL [Concomitant]
     Active Substance: ACETAMINOPHEN
     Indication: PAIN
     Dates: start: 20170104

REACTIONS (3)
  - Pyrexia [Unknown]
  - Dysuria [Unknown]
  - Urinary tract infection [Unknown]

NARRATIVE: CASE EVENT DATE: 20210328
